FAERS Safety Report 13891023 (Version 3)
Quarter: 2017Q4

REPORT INFORMATION
  Report Type: Spontaneous
  Country: FR (occurrence: FR)
  Receive Date: 20170822
  Receipt Date: 20171002
  Transmission Date: 20180320
  Serious: Yes (Hospitalization)
  Sender: FDA-Public Use
  Company Number: PHHY2017FR121636

PATIENT
  Age: 50 Year
  Sex: Male

DRUGS (2)
  1. CORTISONE [Concomitant]
     Active Substance: CORTISONE\HYDROCORTISONE
     Indication: MULTIPLE SCLEROSIS
     Dosage: BY BOLUS
     Route: 065
     Dates: start: 2016, end: 2017
  2. GILENYA [Suspect]
     Active Substance: FINGOLIMOD HYDROCHLORIDE
     Indication: MULTIPLE SCLEROSIS
     Dosage: UNK
     Route: 065
     Dates: start: 201610, end: 201704

REACTIONS (16)
  - Asthenia [Unknown]
  - Depression [Unknown]
  - Feeling abnormal [Unknown]
  - Eye disorder [Unknown]
  - Anxiety [Unknown]
  - Malaise [Unknown]
  - Visual impairment [Unknown]
  - Gait disturbance [Unknown]
  - Panic attack [Unknown]
  - Insomnia [Unknown]
  - Pain [Unknown]
  - Loss of consciousness [Not Recovered/Not Resolved]
  - Burning sensation [Unknown]
  - Hepatic pain [Unknown]
  - Multiple sclerosis relapse [Not Recovered/Not Resolved]
  - Palpitations [Not Recovered/Not Resolved]

NARRATIVE: CASE EVENT DATE: 2016
